FAERS Safety Report 25486388 (Version 1)
Quarter: 2025Q2

REPORT INFORMATION
  Report Type: Spontaneous
  Country: JP (occurrence: JP)
  Receive Date: 20250627
  Receipt Date: 20250627
  Transmission Date: 20250716
  Serious: Yes (Other)
  Sender: ROCHE
  Company Number: JP-CHUGAI-2025020029

PATIENT
  Age: 88 Year
  Sex: Female

DRUGS (2)
  1. ACTEMRA [Suspect]
     Active Substance: TOCILIZUMAB
     Indication: Rheumatoid arthritis
     Route: 058
  2. ACTEMRA [Suspect]
     Active Substance: TOCILIZUMAB
     Dosage: 162 MILLIGRAM, ONCE/4WEEKS
     Route: 058

REACTIONS (3)
  - Bile duct cancer [Unknown]
  - Pneumonia [Recovering/Resolving]
  - Off label use [Unknown]
